FAERS Safety Report 17604802 (Version 1)
Quarter: 2020Q1

REPORT INFORMATION
  Report Type: Spontaneous
  Country: US (occurrence: US)
  Receive Date: 20200329
  Receipt Date: 20200329
  Transmission Date: 20200409
  Serious: No
  Sender: FDA-Public Use
  Company Number: None

PATIENT
  Age: 82 Year
  Sex: Female

DRUGS (2)
  1. ICATIBANT ACETATE SYR 30MG/3ML TEVA PHARMACEUTICALS USA [Suspect]
     Active Substance: ICATIBANT ACETATE
     Indication: COMPLEMENT FACTOR
     Dosage: ?          OTHER DOSE:30/3 MG/ML;?
     Route: 058
     Dates: start: 201110
  2. ICATIBANT ACETATE SYR 30MG/3ML TEVA PHARMACEUTICALS USA [Suspect]
     Active Substance: ICATIBANT ACETATE
     Indication: IMMUNE SYSTEM DISORDER
     Dosage: ?          OTHER DOSE:30/3 MG/ML;?
     Route: 058
     Dates: start: 201110

REACTIONS (1)
  - Abdominal distension [None]

NARRATIVE: CASE EVENT DATE: 202002
